FAERS Safety Report 9057703 (Version 1)
Quarter: 2013Q1

REPORT INFORMATION
  Report Type: Spontaneous
  Country: US (occurrence: US)
  Receive Date: 20130204
  Receipt Date: 20130204
  Transmission Date: 20140127
  Serious: No
  Sender: FDA-Public Use
  Company Number: US-PFIZER INC-2013038397

PATIENT
  Age: 65 Year
  Sex: Female

DRUGS (5)
  1. DAYPRO [Suspect]
     Dosage: UNK
  2. LITHIUM CARBONATE [Suspect]
     Dosage: UNK
  3. NEOMYCIN SULFATE [Suspect]
     Dosage: UNK
  4. CODEINE [Suspect]
     Dosage: UNK
  5. MOBIC [Suspect]
     Dosage: UNK

REACTIONS (1)
  - Drug hypersensitivity [Unknown]
